FAERS Safety Report 14298645 (Version 2)
Quarter: 2018Q3

REPORT INFORMATION
  Report Type: Report from Study
  Country: IT (occurrence: IT)
  Receive Date: 20171218
  Receipt Date: 20180704
  Transmission Date: 20181010
  Serious: Yes (Hospitalization)
  Sender: FDA-Public Use
  Company Number: IT-TEVA-2017-IT-835039

PATIENT
  Age: 21 Year
  Sex: Female

DRUGS (4)
  1. LORAZEPAM. [Suspect]
     Active Substance: LORAZEPAM
     Route: 048
  2. DULOXETINA TEVA ITALIA 30 MG CAPSULE RIGIDE GASTRORESISTENTI [Suspect]
     Active Substance: DULOXETINE HYDROCHLORIDE
     Route: 048
  3. DULOXETINA TEVA ITALIA 60 MG CAPSULE RIGIDE GASTRORESISTENTI [Suspect]
     Active Substance: DULOXETINE HYDROCHLORIDE
     Route: 048
  4. OLANZAPINE MYLAN 5 MG FILM?COATED TABLETS [Suspect]
     Active Substance: OLANZAPINE
     Route: 048

REACTIONS (3)
  - Suicidal ideation [Recovering/Resolving]
  - Toxicity to various agents [Recovering/Resolving]
  - Sopor [Recovering/Resolving]

NARRATIVE: CASE EVENT DATE: 20171123
